FAERS Safety Report 6468445-6 (Version None)
Quarter: 2009Q4

REPORT INFORMATION
  Report Type: 
  Country: None (occurrence: None)
  Receive Date: 20091202
  Receipt Date: 20091202
  Transmission Date: 20100525
  Serious: Yes (Other)
  Sender: FDA-Public Use
  Company Number: None

PATIENT
  Sex: Female
  Weight: 79.3795 kg

DRUGS (1)
  1. SIMVASTATIN [Suspect]
     Dosage: 1 IN EVENING

REACTIONS (3)
  - ALOPECIA [None]
  - PRURITUS [None]
  - RASH PAPULAR [None]
